FAERS Safety Report 8698201 (Version 2)
Quarter: 2013Q4

REPORT INFORMATION
  Report Type: Spontaneous
  Country: US (occurrence: US)
  Receive Date: 20120802
  Receipt Date: 20131105
  Transmission Date: 20140711
  Serious: Yes (Other)
  Sender: FDA-Public Use
  Company Number: US-009507513-1207USA010764

PATIENT
  Age: 81 Year
  Sex: Male

DRUGS (6)
  1. ZOCOR [Suspect]
     Dosage: 1 DF, QD
     Route: 048
  2. QUININE SULFATE [Concomitant]
  3. LISINOPRIL [Concomitant]
     Route: 048
  4. PRAVASTATIN SODIUM [Concomitant]
  5. ASPIRIN [Concomitant]
  6. LANSOPRAZOLE [Concomitant]

REACTIONS (11)
  - Convulsion [Unknown]
  - Eyelid ptosis [Unknown]
  - Neuropathy peripheral [Unknown]
  - Musculoskeletal stiffness [Unknown]
  - Sleep disorder [Unknown]
  - Hypoaesthesia [Unknown]
  - Sensory loss [Unknown]
  - Muscular weakness [Unknown]
  - Muscle spasms [Unknown]
  - Blepharitis [Unknown]
  - Muscle rigidity [Unknown]
